FAERS Safety Report 18633728 (Version 1)
Quarter: 2020Q4

REPORT INFORMATION
  Report Type: Spontaneous
  Country: US (occurrence: US)
  Receive Date: 20201218
  Receipt Date: 20201218
  Transmission Date: 20210114
  Serious: Yes (Death, Other)
  Sender: FDA-Public Use
  Company Number: NVSC2020US336325

PATIENT
  Age: 58 Year
  Sex: Male

DRUGS (1)
  1. PROMACTA [Suspect]
     Active Substance: ELTROMBOPAG OLAMINE
     Indication: PANCYTOPENIA
     Dosage: 75 MG, QD
     Route: 048
     Dates: start: 201703

REACTIONS (1)
  - Death [Fatal]

NARRATIVE: CASE EVENT DATE: 20201029
